FAERS Safety Report 4984121-0 (Version None)
Quarter: 2006Q1

REPORT INFORMATION
  Report Type: 
  Country: None (occurrence: None)
  Receive Date: 20060303
  Receipt Date: 20060103
  Transmission Date: 20060701
  Serious: Yes (Other)
  Sender: FDA-Public Use
  Company Number: HQWYE238906JAN06

PATIENT
  Age: 54 Year
  Sex: Female
  Weight: 72.64 kg

DRUGS (4)
  1. ALAVERT D-12 (LORATADINE/PSEUDOEPHERINE SULFATE, TABLET, EXTENDED RELE [Suspect]
     Indication: HYPERSENSITIVITY
     Dosage: 1 TABLET AT BEDTIME, ORAL
     Route: 048
     Dates: start: 20051201, end: 20060102
  2. FLONASE [Concomitant]
  3. ASPIRIN [Concomitant]
  4. TOPROL-XL [Concomitant]

REACTIONS (2)
  - INITIAL INSOMNIA [None]
  - INSOMNIA [None]
